FAERS Safety Report 5159192-1 (Version None)
Quarter: 2006Q4

REPORT INFORMATION
  Report Type: 
  Country: None (occurrence: None)
  Receive Date: 20061128
  Receipt Date: 20061117
  Transmission Date: 20070319
  Serious: Yes (Hospitalization)
  Sender: FDA-Public Use
  Company Number: NL-GILEAD-2006-0010699

PATIENT

DRUGS (2)
  1. ADEFOVIR DIPIVOXIL [Suspect]
  2. PEGASYS [Suspect]

REACTIONS (1)
  - MYOCARDIAL INFARCTION [None]
